FAERS Safety Report 5808581-8 (Version None)
Quarter: 2008Q3

REPORT INFORMATION
  Report Type: 
  Country: None (occurrence: None)
  Receive Date: 20080709
  Receipt Date: 20080709
  Transmission Date: 20090109
  Serious: Yes (Hospitalization)
  Sender: FDA-Public Use
  Company Number: None

PATIENT
  Age: 63 Year
  Sex: Male
  Weight: 86 kg

DRUGS (2)
  1. HYDROCHLOROTHIAZIDE [Suspect]
     Dosage: 12.5 MG EVERY DAY PO
     Route: 048
     Dates: start: 20070425
  2. LISINOPRIL [Suspect]
     Dosage: 20 MG EVERY DAY PO
     Route: 048
     Dates: start: 20051102, end: 20070601

REACTIONS (4)
  - ABDOMINAL PAIN [None]
  - ALCOHOL USE [None]
  - CONDITION AGGRAVATED [None]
  - HYPONATRAEMIA [None]
